FAERS Safety Report 8329885-3 (Version None)
Quarter: 2012Q2

REPORT INFORMATION
  Report Type: 
  Country: None (occurrence: None)
  Receive Date: 20120502
  Receipt Date: 20120430
  Transmission Date: 20120825
  Serious: No
  Sender: FDA-Public Use
  Company Number: US-PFIZER INC-2012106385

PATIENT
  Sex: Female
  Weight: 70 kg

DRUGS (10)
  1. CHANTIX [Suspect]
     Indication: SMOKING CESSATION THERAPY
     Dosage: 0.5 MG, 1X/DAY
     Route: 048
     Dates: start: 20120416, end: 20120401
  2. SPARINE [Concomitant]
     Indication: NAUSEA
     Dosage: UNK
  3. CHANTIX [Suspect]
     Dosage: 1 MG, 2X/DAY
     Route: 048
     Dates: start: 20120401
  4. LORAZEPAM [Concomitant]
     Dosage: UNK
  5. LORATADINE [Concomitant]
     Dosage: UNK
  6. OMEPRAZOLE [Concomitant]
     Dosage: UNK
  7. CYCLOBENZAPRINE [Concomitant]
     Dosage: UNK
  8. SEROQUEL [Concomitant]
     Dosage: UNK
  9. RHOGAM [Concomitant]
     Dosage: UNK
  10. PERCOCET [Concomitant]
     Dosage: UNK

REACTIONS (1)
  - NAUSEA [None]
